FAERS Safety Report 25555066 (Version 2)
Quarter: 2025Q3

REPORT INFORMATION
  Report Type: Spontaneous
  Country: US (occurrence: US)
  Receive Date: 20250715
  Receipt Date: 20250814
  Transmission Date: 20251021
  Serious: No
  Sender: PFIZER
  Company Number: US-PFIZER INC-202500128754

PATIENT
  Age: 6 Year
  Sex: Male
  Weight: 24.04 kg

DRUGS (1)
  1. GENOTROPIN [Suspect]
     Active Substance: SOMATROPIN
     Indication: Growth hormone deficiency
     Dosage: 0.8, UNITS UNKNOWN, SUPPOSED TO TAKE VERY EVERY DAY

REACTIONS (5)
  - Device use issue [Unknown]
  - Device use issue [Unknown]
  - Device power source issue [Unknown]
  - Device delivery system issue [Unknown]
  - Incorrect dose administered by device [Unknown]

NARRATIVE: CASE EVENT DATE: 20230101
